FAERS Safety Report 25419375 (Version 1)
Quarter: 2025Q2

REPORT INFORMATION
  Report Type: Spontaneous
  Country: GB (occurrence: GB)
  Receive Date: 20250610
  Receipt Date: 20250610
  Transmission Date: 20250717
  Serious: Yes (Other)
  Sender: MYLAN
  Company Number: GB-MHRA-TPP62341365C22275880YC1749038891585

PATIENT
  Age: 78 Year
  Sex: Female
  Weight: 66 kg

DRUGS (44)
  1. RIVASTIGMINE [Suspect]
     Active Substance: RIVASTIGMINE
     Indication: Ill-defined disorder
     Dosage: 1.5 MILLIGRAM, QD (1 EVERY DAY FOR MEMORY SUPPORT - STOP 3MG RIVAS)
     Dates: start: 20250411
  2. RIVASTIGMINE [Suspect]
     Active Substance: RIVASTIGMINE
     Indication: Memory impairment
     Dosage: 1.5 MILLIGRAM, QD (1 EVERY DAY FOR MEMORY SUPPORT - STOP 3MG RIVAS)
     Route: 065
     Dates: start: 20250411
  3. RIVASTIGMINE [Suspect]
     Active Substance: RIVASTIGMINE
     Dosage: 1.5 MILLIGRAM, QD (1 EVERY DAY FOR MEMORY SUPPORT - STOP 3MG RIVAS)
     Route: 065
     Dates: start: 20250411
  4. RIVASTIGMINE [Suspect]
     Active Substance: RIVASTIGMINE
     Dosage: 1.5 MILLIGRAM, QD (1 EVERY DAY FOR MEMORY SUPPORT - STOP 3MG RIVAS)
     Dates: start: 20250411
  5. CODEINE PHOSPHATE [Concomitant]
     Active Substance: CODEINE PHOSPHATE
     Indication: Ill-defined disorder
     Dosage: 2 DOSAGE FORM, QID (2 TO BE TAKEN FOUR TIMES DAILY)
     Dates: start: 20250314, end: 20250321
  6. CODEINE PHOSPHATE [Concomitant]
     Active Substance: CODEINE PHOSPHATE
     Dosage: 2 DOSAGE FORM, QID (2 TO BE TAKEN FOUR TIMES DAILY)
     Route: 065
     Dates: start: 20250314, end: 20250321
  7. CODEINE PHOSPHATE [Concomitant]
     Active Substance: CODEINE PHOSPHATE
     Dosage: 2 DOSAGE FORM, QID (2 TO BE TAKEN FOUR TIMES DAILY)
     Route: 065
     Dates: start: 20250314, end: 20250321
  8. CODEINE PHOSPHATE [Concomitant]
     Active Substance: CODEINE PHOSPHATE
     Dosage: 2 DOSAGE FORM, QID (2 TO BE TAKEN FOUR TIMES DAILY)
     Dates: start: 20250314, end: 20250321
  9. MORPHINE SULFATE [Concomitant]
     Active Substance: MORPHINE SULFATE
     Indication: Ill-defined disorder
     Dosage: 2.5 MILLIGRAM, Q4H (FOR BREAK THROUGH PAIN ONLY - 2.5MLS EVERY 4 HO)
     Dates: start: 20250314, end: 20250324
  10. MORPHINE SULFATE [Concomitant]
     Active Substance: MORPHINE SULFATE
     Indication: Pain
     Dosage: 2.5 MILLIGRAM, Q4H (FOR BREAK THROUGH PAIN ONLY - 2.5MLS EVERY 4 HO)
     Route: 065
     Dates: start: 20250314, end: 20250324
  11. MORPHINE SULFATE [Concomitant]
     Active Substance: MORPHINE SULFATE
     Dosage: 2.5 MILLIGRAM, Q4H (FOR BREAK THROUGH PAIN ONLY - 2.5MLS EVERY 4 HO)
     Route: 065
     Dates: start: 20250314, end: 20250324
  12. MORPHINE SULFATE [Concomitant]
     Active Substance: MORPHINE SULFATE
     Dosage: 2.5 MILLIGRAM, Q4H (FOR BREAK THROUGH PAIN ONLY - 2.5MLS EVERY 4 HO)
     Dates: start: 20250314, end: 20250324
  13. ASPIRIN [Concomitant]
     Active Substance: ASPIRIN
     Indication: Ill-defined disorder
     Dosage: 1 DOSAGE FORM, AM (ONE TO BE TAKEN EACH MORNING)
     Dates: start: 20241119
  14. ASPIRIN [Concomitant]
     Active Substance: ASPIRIN
     Dosage: 1 DOSAGE FORM, AM (ONE TO BE TAKEN EACH MORNING)
     Route: 065
     Dates: start: 20241119
  15. ASPIRIN [Concomitant]
     Active Substance: ASPIRIN
     Dosage: 1 DOSAGE FORM, AM (ONE TO BE TAKEN EACH MORNING)
     Route: 065
     Dates: start: 20241119
  16. ASPIRIN [Concomitant]
     Active Substance: ASPIRIN
     Dosage: 1 DOSAGE FORM, AM (ONE TO BE TAKEN EACH MORNING)
     Dates: start: 20241119
  17. COCODAMOL [Concomitant]
     Active Substance: ACETAMINOPHEN\CODEINE PHOSPHATE
     Indication: Ill-defined disorder
  18. COCODAMOL [Concomitant]
     Active Substance: ACETAMINOPHEN\CODEINE PHOSPHATE
     Route: 065
  19. COCODAMOL [Concomitant]
     Active Substance: ACETAMINOPHEN\CODEINE PHOSPHATE
     Route: 065
  20. COCODAMOL [Concomitant]
     Active Substance: ACETAMINOPHEN\CODEINE PHOSPHATE
  21. LEVOTHYROXINE [Concomitant]
     Active Substance: LEVOTHYROXINE
     Indication: Ill-defined disorder
     Dosage: 1 DOSAGE FORM, AM (TABLET IN THE MORNING)
     Dates: start: 20241119
  22. LEVOTHYROXINE [Concomitant]
     Active Substance: LEVOTHYROXINE
     Dosage: 1 DOSAGE FORM, AM (TABLET IN THE MORNING)
     Route: 065
     Dates: start: 20241119
  23. LEVOTHYROXINE [Concomitant]
     Active Substance: LEVOTHYROXINE
     Dosage: 1 DOSAGE FORM, AM (TABLET IN THE MORNING)
     Route: 065
     Dates: start: 20241119
  24. LEVOTHYROXINE [Concomitant]
     Active Substance: LEVOTHYROXINE
     Dosage: 1 DOSAGE FORM, AM (TABLET IN THE MORNING)
     Dates: start: 20241119
  25. METFORMIN [Concomitant]
     Active Substance: METFORMIN HYDROCHLORIDE
     Indication: Ill-defined disorder
  26. METFORMIN [Concomitant]
     Active Substance: METFORMIN HYDROCHLORIDE
     Route: 065
  27. METFORMIN [Concomitant]
     Active Substance: METFORMIN HYDROCHLORIDE
     Route: 065
  28. METFORMIN [Concomitant]
     Active Substance: METFORMIN HYDROCHLORIDE
  29. CALCIUM CARBONATE\CHOLECALCIFEROL [Concomitant]
     Active Substance: CALCIUM CARBONATE\CHOLECALCIFEROL
     Indication: Ill-defined disorder
     Dosage: 1 DOSAGE FORM, QD (TAKE ONE A DAY)
     Dates: start: 20241119
  30. CALCIUM CARBONATE\CHOLECALCIFEROL [Concomitant]
     Active Substance: CALCIUM CARBONATE\CHOLECALCIFEROL
     Dosage: 1 DOSAGE FORM, QD (TAKE ONE A DAY)
     Route: 065
     Dates: start: 20241119
  31. CALCIUM CARBONATE\CHOLECALCIFEROL [Concomitant]
     Active Substance: CALCIUM CARBONATE\CHOLECALCIFEROL
     Dosage: 1 DOSAGE FORM, QD (TAKE ONE A DAY)
     Route: 065
     Dates: start: 20241119
  32. CALCIUM CARBONATE\CHOLECALCIFEROL [Concomitant]
     Active Substance: CALCIUM CARBONATE\CHOLECALCIFEROL
     Dosage: 1 DOSAGE FORM, QD (TAKE ONE A DAY)
     Dates: start: 20241119
  33. BEMPEDOIC ACID [Concomitant]
     Active Substance: BEMPEDOIC ACID
     Indication: Ill-defined disorder
     Dosage: 1 DOSAGE FORM, QD (ONE TO BE TAKEN ONCE DAILY)
     Dates: start: 20241119
  34. BEMPEDOIC ACID [Concomitant]
     Active Substance: BEMPEDOIC ACID
     Dosage: 1 DOSAGE FORM, QD (ONE TO BE TAKEN ONCE DAILY)
     Route: 065
     Dates: start: 20241119
  35. BEMPEDOIC ACID [Concomitant]
     Active Substance: BEMPEDOIC ACID
     Dosage: 1 DOSAGE FORM, QD (ONE TO BE TAKEN ONCE DAILY)
     Route: 065
     Dates: start: 20241119
  36. BEMPEDOIC ACID [Concomitant]
     Active Substance: BEMPEDOIC ACID
     Dosage: 1 DOSAGE FORM, QD (ONE TO BE TAKEN ONCE DAILY)
     Dates: start: 20241119
  37. TERBINAFINE [Concomitant]
     Active Substance: TERBINAFINE
     Indication: Ill-defined disorder
     Dosage: UNK UNK, BID (APPLY THINLY TWICE A DAY AS DIRECTED )
     Dates: start: 20241119
  38. TERBINAFINE [Concomitant]
     Active Substance: TERBINAFINE
     Dosage: UNK UNK, BID (APPLY THINLY TWICE A DAY AS DIRECTED )
     Route: 065
     Dates: start: 20241119
  39. TERBINAFINE [Concomitant]
     Active Substance: TERBINAFINE
     Dosage: UNK UNK, BID (APPLY THINLY TWICE A DAY AS DIRECTED )
     Route: 065
     Dates: start: 20241119
  40. TERBINAFINE [Concomitant]
     Active Substance: TERBINAFINE
     Dosage: UNK UNK, BID (APPLY THINLY TWICE A DAY AS DIRECTED )
     Dates: start: 20241119
  41. LOSARTAN [Concomitant]
     Active Substance: LOSARTAN
     Indication: Ill-defined disorder
     Dosage: 1 DOSAGE FORM, QD (TAKE ONE DAILY)
     Dates: start: 20241231
  42. LOSARTAN [Concomitant]
     Active Substance: LOSARTAN
     Dosage: 1 DOSAGE FORM, QD (TAKE ONE DAILY)
     Route: 065
     Dates: start: 20241231
  43. LOSARTAN [Concomitant]
     Active Substance: LOSARTAN
     Dosage: 1 DOSAGE FORM, QD (TAKE ONE DAILY)
     Route: 065
     Dates: start: 20241231
  44. LOSARTAN [Concomitant]
     Active Substance: LOSARTAN
     Dosage: 1 DOSAGE FORM, QD (TAKE ONE DAILY)
     Dates: start: 20241231

REACTIONS (2)
  - Resting tremor [Not Recovered/Not Resolved]
  - Abnormal loss of weight [Not Recovered/Not Resolved]
